FAERS Safety Report 15404668 (Version 1)
Quarter: 2018Q3

REPORT INFORMATION
  Report Type: Spontaneous
  Country: CH (occurrence: CH)
  Receive Date: 20180919
  Receipt Date: 20180919
  Transmission Date: 20181010
  Serious: Yes (Other)
  Sender: FDA-Public Use
  Company Number: PHHY2018CH086692

PATIENT
  Age: 16 Year
  Sex: Male

DRUGS (1)
  1. TEGRETOL [Suspect]
     Active Substance: CARBAMAZEPINE
     Indication: CEREBRAL PALSY
     Dosage: 200 MG, UNK
     Route: 065

REACTIONS (3)
  - Reticulocyte count decreased [Unknown]
  - Iron deficiency anaemia [Unknown]
  - Malaise [Unknown]

NARRATIVE: CASE EVENT DATE: 201803
